FAERS Safety Report 6864857-7 (Version None)
Quarter: 2010Q3

REPORT INFORMATION
  Report Type: 
  Country: None (occurrence: None)
  Receive Date: 20100721
  Receipt Date: 20080403
  Transmission Date: 20110219
  Serious: No
  Sender: FDA-Public Use
  Company Number: US-PFIZER INC-2008030702

PATIENT
  Sex: Male
  Weight: 77.3 kg

DRUGS (5)
  1. CHANTIX [Suspect]
     Indication: SMOKING CESSATION THERAPY
     Dates: start: 20070901
  2. VERAPAMIL [Concomitant]
     Indication: BLOOD PRESSURE ABNORMAL
  3. ACETYLSALICYLIC ACID [Concomitant]
  4. FISH OIL [Concomitant]
  5. VITAMIN B-12 [Concomitant]

REACTIONS (2)
  - ABDOMINAL PAIN UPPER [None]
  - DRUG DOSE OMISSION [None]
